FAERS Safety Report 5326520-3 (Version None)
Quarter: 2007Q2

REPORT INFORMATION
  Report Type: 
  Country: None (occurrence: None)
  Receive Date: 20070510
  Receipt Date: 20070430
  Transmission Date: 20071010
  Serious: Yes (Other)
  Sender: FDA-Public Use
  Company Number: 07H-163-0312540-00

PATIENT
  Age: 45 Year
  Sex: Male

DRUGS (1)
  1. MORPHINE SULFATE INJ [Suspect]
     Indication: BACK DISORDER
     Dosage: SEE IMAGE
     Route: 037

REACTIONS (5)
  - CATHETER RELATED COMPLICATION [None]
  - FIBROMA [None]
  - GRANULOMA [None]
  - SPINAL CORD COMPRESSION [None]
  - SPINAL CORD NEOPLASM [None]
